FAERS Safety Report 22195881 (Version 1)
Quarter: 2023Q2

REPORT INFORMATION
  Report Type: Other
  Country: CA (occurrence: CA)
  Receive Date: 20230411
  Receipt Date: 20230411
  Transmission Date: 20230721
  Serious: Yes (Other)
  Sender: FDA-Public Use
  Company Number: CA-CELLTRION INC.-2023CA007156

PATIENT

DRUGS (18)
  1. RITUXIMAB [Suspect]
     Active Substance: RITUXIMAB
     Indication: Myositis
     Dosage: 1000 MG
     Route: 042
  2. BISACODYL [Concomitant]
     Active Substance: BISACODYL
     Route: 065
  3. BUDESONIDE\FORMOTEROL FUMARATE [Concomitant]
     Active Substance: BUDESONIDE\FORMOTEROL FUMARATE
  4. DAPAGLIFLOZIN PROPANEDIOL [Concomitant]
     Active Substance: DAPAGLIFLOZIN PROPANEDIOL
  5. ELIQUIS [Concomitant]
     Active Substance: APIXABAN
  6. GLICLAZIDE [Concomitant]
     Active Substance: GLICLAZIDE
  7. METFORMIN [Concomitant]
     Active Substance: METFORMIN HYDROCHLORIDE
     Route: 065
  8. METOCLOPRAMIDE [Concomitant]
     Active Substance: METOCLOPRAMIDE
  9. PANTOPRAZOLE [Concomitant]
     Active Substance: PANTOPRAZOLE
  10. PREDNISOLONE [Concomitant]
     Active Substance: PREDNISOLONE
  11. PREDNISONE [Concomitant]
     Active Substance: PREDNISONE
  12. ALBUTEROL [Concomitant]
     Active Substance: ALBUTEROL
  13. SOLU-MEDROL [Concomitant]
     Active Substance: METHYLPREDNISOLONE SODIUM SUCCINATE
     Dosage: UNK
  14. SULFAMETHOXAZOLE\TRIMETHOPRIM [Concomitant]
     Active Substance: SULFAMETHOXAZOLE\TRIMETHOPRIM
  15. LINAGLIPTIN [Concomitant]
     Active Substance: LINAGLIPTIN
  16. TYLENOL [Concomitant]
     Active Substance: ACETAMINOPHEN
  17. VALSARTAN [Concomitant]
     Active Substance: VALSARTAN
  18. VITAMIN D3 [Concomitant]
     Active Substance: CHOLECALCIFEROL

REACTIONS (2)
  - Dermatomyositis [Unknown]
  - Off label use [Unknown]
